FAERS Safety Report 9411778 (Version 3)
Quarter: 2013Q3

REPORT INFORMATION
  Report Type: Spontaneous
  Country: US (occurrence: US)
  Receive Date: 20130722
  Receipt Date: 20130820
  Transmission Date: 20140515
  Serious: No
  Sender: FDA-Public Use
  Company Number: US-PFIZER INC-2013210947

PATIENT
  Age: 54 Year
  Sex: Female
  Weight: 116 kg

DRUGS (13)
  1. LYRICA [Suspect]
     Indication: NEUROPATHY PERIPHERAL
     Dosage: 75 MG, 3X/DAY
     Route: 048
     Dates: start: 201304, end: 20130712
  2. ALBUTEROL [Concomitant]
     Indication: ASTHMA
     Dosage: UNK, AS NEEDED
  3. AMITRIPTYLINE [Concomitant]
     Dosage: 50 MG, 1X/DAY
     Route: 048
  4. ASPIRIN [Concomitant]
     Dosage: 81 MG, 1X/DAY
     Route: 048
  5. B COMPLEX [Concomitant]
     Dosage: UNK
  6. DURAGESIC [Concomitant]
     Dosage: 1 PATCH (50MCG/H) EVERY 72 HOURS
     Route: 062
  7. METFORMIN [Concomitant]
     Dosage: 500 MG, 2X/DAY
     Route: 048
  8. MOTRIN [Concomitant]
     Dosage: 800 MG, 2X/DAY
     Route: 048
  9. NORCO [Concomitant]
     Indication: PAIN
     Dosage: 1 DF, (4-6 TIMES EVERY DAY) AS NEEDED
     Route: 048
  10. SOMA [Concomitant]
     Dosage: 350 MG, 1X/DAY
     Route: 048
  11. ZANTAC [Concomitant]
     Dosage: 300 MG, 1X/DAY
     Route: 048
  12. OMEGA-3 [Concomitant]
     Dosage: UNK
  13. PROVENTIL INHALER [Concomitant]
     Dosage: UNK, AS NEEDED

REACTIONS (6)
  - Drug withdrawal syndrome [Unknown]
  - Diarrhoea [Unknown]
  - Nausea [Unknown]
  - Malaise [Unknown]
  - Pain [Unknown]
  - Influenza [Unknown]
